FAERS Safety Report 7203351-0 (Version None)
Quarter: 2010Q4

REPORT INFORMATION
  Report Type: 
  Country: None (occurrence: None)
  Receive Date: 20101215
  Receipt Date: 20101210
  Transmission Date: 20110411
  Serious: Yes (Death)
  Sender: FDA-Public Use
  Company Number: 2009SP006853

PATIENT
  Age: 60 Year
  Sex: Male

DRUGS (5)
  1. PEG-INTRON [Suspect]
     Indication: HEPATITIS C
     Dosage: 150 MCG; QW; SC
     Route: 058
     Dates: start: 20081215
  2. REBETOL [Suspect]
     Indication: HEPATITIS C
     Dosage: 1200 MG; QD; PO
     Route: 048
     Dates: start: 20081215
  3. ELTROMBOPAG (ELTROMBOPAG) [Suspect]
     Indication: THROMBOCYTOPENIA
     Dosage: 25 MG; QD; PO
     Route: 048
     Dates: start: 20081124, end: 20081214
  4. BLINDED ELTROMBOPAG (ELTROMBOPAG) [Suspect]
     Indication: THROMBOCYTOPENIA
     Dosage: QD; PO
     Route: 048
     Dates: start: 20081215, end: 20090319
  5. OMEPRAZOLE [Concomitant]

REACTIONS (6)
  - BLOOD GLUCOSE INCREASED [None]
  - MELAENA [None]
  - OESOPHAGEAL VARICES HAEMORRHAGE [None]
  - PEPTIC ULCER [None]
  - PLATELET COUNT DECREASED [None]
  - REFLUX OESOPHAGITIS [None]
